FAERS Safety Report 13375832 (Version 2)
Quarter: 2017Q2

REPORT INFORMATION
  Report Type: Spontaneous
  Country: ZA (occurrence: ZA)
  Receive Date: 20170328
  Receipt Date: 20170411
  Transmission Date: 20170830
  Serious: No
  Sender: FDA-Public Use
  Company Number: ZA-ROCHE-1912404

PATIENT
  Age: 62 Year
  Sex: Male
  Weight: 99 kg

DRUGS (5)
  1. XELODA [Suspect]
     Active Substance: CAPECITABINE
     Dosage: FOR 14 DAYS PAST 7 DAYS (2300MG)
     Route: 065
     Dates: start: 20170314
  2. OXALIPLATIN. [Suspect]
     Active Substance: OXALIPLATIN
     Indication: PRODUCT USED FOR UNKNOWN INDICATION
     Dosage: DAY 1 EVERY 3 WEEKS
     Route: 042
     Dates: start: 20170314
  3. AVASTIN [Suspect]
     Active Substance: BEVACIZUMAB
     Dosage: DAY 1 EVERY 3 WEEKS
     Route: 042
     Dates: start: 20170314
  4. XELODA [Suspect]
     Active Substance: CAPECITABINE
     Indication: PRODUCT USED FOR UNKNOWN INDICATION
     Route: 065
  5. AVASTIN [Suspect]
     Active Substance: BEVACIZUMAB
     Indication: PRODUCT USED FOR UNKNOWN INDICATION
     Route: 065

REACTIONS (1)
  - Asphyxia [Recovering/Resolving]

NARRATIVE: CASE EVENT DATE: 20170316
